FAERS Safety Report 16992382 (Version 1)
Quarter: 2019Q4

REPORT INFORMATION
  Report Type: Spontaneous
  Country: FI (occurrence: FI)
  Receive Date: 20191105
  Receipt Date: 20191105
  Transmission Date: 20200122
  Serious: Yes (Disabling)
  Sender: FDA-Public Use
  Company Number: FI-TEVA-2019-FI-1130071

PATIENT
  Age: 60 Year
  Sex: Male

DRUGS (4)
  1. RAMIPRIL RATIOPHARM [Concomitant]
     Active Substance: RAMIPRIL
     Indication: BLOOD PRESSURE MEASUREMENT
     Dosage: 10,MG,DAILY
     Route: 048
  2. AMLODIPIN ORION [Concomitant]
     Indication: BLOOD PRESSURE MEASUREMENT
     Dosage: 10,MG,DAILY
     Route: 048
  3. FINASTERID RATIOPHARM 5 MG FILMTABLETTEN [Suspect]
     Active Substance: FINASTERIDE
     Indication: PROSTATOMEGALY
     Dosage: 5,MG,DAILY/ 2  WEEKS
     Route: 048
  4. THYROXIN [Concomitant]
     Active Substance: LEVOTHYROXINE
     Indication: HYPOTHYROIDISM
     Dosage: 50 MCG,DAILY
     Route: 048

REACTIONS (4)
  - Flatulence [Recovered/Resolved]
  - Diarrhoea [Recovered/Resolved]
  - Gastrointestinal disorder [Recovered/Resolved]
  - Therapeutic response changed [Recovered/Resolved]
